FAERS Safety Report 18432112 (Version 2)
Quarter: 2020Q4

REPORT INFORMATION
  Report Type: Spontaneous
  Country: FR (occurrence: FR)
  Receive Date: 20201027
  Receipt Date: 20201111
  Transmission Date: 20210114
  Serious: Yes (Life-Threatening, Hospitalization)
  Sender: FDA-Public Use
  Company Number: FR-PFIZER INC-2020410002

PATIENT
  Age: 69 Year
  Sex: Male

DRUGS (4)
  1. SERTRALINE [Suspect]
     Active Substance: SERTRALINE HYDROCHLORIDE
     Indication: DEPRESSION
     Dosage: 1 DF
     Route: 048
  2. THERALENE [Suspect]
     Active Substance: TRIMEPRAZINE
     Dosage: 15 DROP
     Route: 048
     Dates: start: 20200724, end: 20200925
  3. BILASKA [Suspect]
     Active Substance: BILASTINE
     Indication: HYPERSENSITIVITY
     Dosage: 20 MG
     Route: 048
     Dates: end: 20200925
  4. TOVIAZ [Suspect]
     Active Substance: FESOTERODINE FUMARATE
     Indication: MICTURITION URGENCY
     Dosage: 8 MG
     Route: 048
     Dates: end: 20200925

REACTIONS (3)
  - Cardiac arrest [Recovered/Resolved]
  - Off label use [Unknown]
  - Product use in unapproved indication [Unknown]

NARRATIVE: CASE EVENT DATE: 20200925
